FAERS Safety Report 15423972 (Version 1)
Quarter: 2018Q3

REPORT INFORMATION
  Report Type: Spontaneous
  Country: GB (occurrence: GB)
  Receive Date: 20180925
  Receipt Date: 20180925
  Transmission Date: 20181010
  Serious: Yes (Other)
  Sender: FDA-Public Use
  Company Number: GB-MICRO LABS LIMITED-BB2018-02110

PATIENT
  Age: 61 Year
  Sex: Male
  Weight: 93 kg

DRUGS (15)
  1. PROPRANOLOL [Concomitant]
     Active Substance: PROPRANOLOL HYDROCHLORIDE
     Dates: start: 20180411
  2. MERCAPTOPURINE. [Concomitant]
     Active Substance: MERCAPTOPURINE
     Dates: start: 20180411
  3. BUDENOFALK [Concomitant]
     Active Substance: BUDESONIDE
     Dosage: USE
     Dates: start: 20180510
  4. BENDROFLUMETHIAZIDE [Concomitant]
     Active Substance: BENDROFLUMETHIAZIDE
     Dates: start: 20180411
  5. FELODIPINE. [Concomitant]
     Active Substance: FELODIPINE
     Dates: start: 20180411
  6. ACETYLSALICYLIC ACID [Concomitant]
     Active Substance: ASPIRIN
     Dates: start: 20180411
  7. CODEINE PHOSPHATE [Concomitant]
     Active Substance: CODEINE PHOSPHATE
     Dosage: DAILY
     Dates: start: 20180411
  8. LISINOPRIL. [Concomitant]
     Active Substance: LISINOPRIL
     Dates: start: 20180411
  9. EICOSAPENTAENOIC ACID [Concomitant]
     Active Substance: ICOSAPENT
     Dates: start: 20180411, end: 20180828
  10. SIMVASTATIN. [Suspect]
     Active Substance: SIMVASTATIN
     Dates: start: 20180828
  11. FENOFIBRATE. [Concomitant]
     Active Substance: FENOFIBRATE
     Dates: start: 20180411
  12. ACCRETE D3 [Concomitant]
     Dates: start: 20180411
  13. SITAGLIPTIN [Concomitant]
     Active Substance: SITAGLIPTIN
     Dates: start: 20180411
  14. GLICLAZIDE [Concomitant]
     Active Substance: GLICLAZIDE
     Dates: start: 20180411
  15. TRAMADOL. [Concomitant]
     Active Substance: TRAMADOL
     Dosage: ONE OR TWO TO BE TAKEN FOUR TIMES DAILY
     Dates: start: 20180411

REACTIONS (1)
  - Abdominal discomfort [Recovered/Resolved]

NARRATIVE: CASE EVENT DATE: 20180828
